FAERS Safety Report 4324898-0 (Version None)
Quarter: 2004Q1

REPORT INFORMATION
  Report Type: 
  Country: None (occurrence: None)
  Receive Date: 20040326
  Receipt Date: 20040316
  Transmission Date: 20041129
  Serious: Yes (Other)
  Sender: FDA-Public Use
  Company Number: PHNR2004AU00766

PATIENT
  Age: 29 Year
  Sex: Female

DRUGS (3)
  1. SYNTOCINON [Suspect]
     Indication: OPERATIVE HAEMORRHAGE
     Dosage: 5 IU, UNK
     Route: 042
     Dates: start: 20040303, end: 20040303
  2. SYNTOCINON [Suspect]
     Dosage: 30 IU, UNK
     Route: 042
     Dates: start: 20040303, end: 20040303
  3. SODIUM CHLORIDE 0.9% [Concomitant]
     Dates: start: 20040303, end: 20040303

REACTIONS (3)
  - HAEMOGLOBIN DECREASED [None]
  - HYPOTENSION [None]
  - OPERATIVE HAEMORRHAGE [None]
